FAERS Safety Report 25261250 (Version 2)
Quarter: 2025Q3

REPORT INFORMATION
  Report Type: Spontaneous
  Country: US (occurrence: US)
  Receive Date: 20250501
  Receipt Date: 20250710
  Transmission Date: 20251020
  Serious: No
  Sender: MERCK SHARP & DOHME LLC
  Company Number: US-009507513-2276006

PATIENT
  Sex: Female
  Weight: 114.7 kg

DRUGS (23)
  1. SOTATERCEPT [Suspect]
     Active Substance: SOTATERCEPT
     Indication: Product used for unknown indication
  2. SOTATERCEPT [Suspect]
     Active Substance: SOTATERCEPT
  3. SOTATERCEPT [Suspect]
     Active Substance: SOTATERCEPT
  4. SOTATERCEPT [Suspect]
     Active Substance: SOTATERCEPT
  5. spironolactone hydrochlorothiazide [Concomitant]
  6. FUROSEMIDE [Concomitant]
     Active Substance: FUROSEMIDE
  7. POTASSIUM CHLORIDE [Concomitant]
     Active Substance: POTASSIUM CHLORIDE
  8. SILDENAFIL [Concomitant]
     Active Substance: SILDENAFIL
  9. ketamine hydrochloride USP [Concomitant]
  10. LECITHIN [Concomitant]
     Active Substance: LECITHIN
  11. GABAPENTIN [Concomitant]
     Active Substance: GABAPENTIN
  12. ATORVASTATIN CALCIUM [Concomitant]
     Active Substance: ATORVASTATIN CALCIUM
  13. clonidine usp [Concomitant]
  14. ketoprofen usp [Concomitant]
  15. IRON [Concomitant]
     Active Substance: IRON
  16. ORENITRAM [Concomitant]
     Active Substance: TREPROSTINIL
  17. OXYGEN [Concomitant]
     Active Substance: OXYGEN
  18. SPIRONOLACTONE [Concomitant]
     Active Substance: SPIRONOLACTONE
  19. lidocaine hydrochloride usp [Concomitant]
  20. MOUNJARO [Concomitant]
     Active Substance: TIRZEPATIDE
  21. amitriptyline usp [Concomitant]
  22. POLOXAMER [Concomitant]
     Active Substance: POLOXAMER
  23. REMODULIN [Suspect]
     Active Substance: TREPROSTINIL
     Indication: Pulmonary arterial hypertension
     Route: 058
     Dates: start: 20241122

REACTIONS (2)
  - Ill-defined disorder [Unknown]
  - Device maintenance issue [Unknown]
